FAERS Safety Report 22712550 (Version 2)
Quarter: 2024Q3

REPORT INFORMATION
  Report Type: Report from Study
  Country: US (occurrence: US)
  Receive Date: 20230717
  Receipt Date: 20240723
  Transmission Date: 20241017
  Serious: No
  Sender: VANDA PHARMACEUTICALS
  Company Number: US-VANDA PHARMACEUTICALS, INC-2022TASUS005979

PATIENT
  Age: 59 Year
  Sex: Female

DRUGS (1)
  1. HETLIOZ [Suspect]
     Active Substance: TASIMELTEON
     Indication: Non-24-hour sleep-wake disorder
     Dosage: 20 MILLILITER, QD, EVERY 24 HOURS ONE HOUR BEFORE BEDTIME
     Route: 048

REACTIONS (3)
  - Pain in extremity [Unknown]
  - Fall [Unknown]
  - Memory impairment [Unknown]

NARRATIVE: CASE EVENT DATE: 20220501
